FAERS Safety Report 13720336 (Version 7)
Quarter: 2019Q4

REPORT INFORMATION
  Report Type: Report from Study
  Country: US (occurrence: US)
  Receive Date: 20170706
  Receipt Date: 20191009
  Transmission Date: 20200122
  Serious: Yes (Hospitalization, Other)
  Sender: FDA-Public Use
  Company Number: US-BRISTOL-MYERS SQUIBB COMPANY-BMS-2017-058890

PATIENT
  Age: 70 Year
  Sex: Female

DRUGS (11)
  1. IPILIMUMAB [Suspect]
     Active Substance: IPILIMUMAB
     Indication: MALIGNANT MELANOMA
     Dosage: UNK, Q3WK
     Route: 065
     Dates: start: 20170503
  2. METHYLPREDNISOLONE. [Suspect]
     Active Substance: METHYLPREDNISOLONE
     Indication: COLITIS
     Dosage: 60 MG, BID
     Route: 042
     Dates: start: 20170626, end: 20170630
  3. PREDNISONE. [Suspect]
     Active Substance: PREDNISONE
     Indication: PRODUCT USED FOR UNKNOWN INDICATION
     Dosage: 60 MG, BID
     Route: 048
     Dates: start: 20170706
  4. PREDNISONE. [Suspect]
     Active Substance: PREDNISONE
     Indication: PRODUCT USED FOR UNKNOWN INDICATION
     Dosage: 50 MG, BID
     Route: 048
     Dates: start: 20170710
  5. PREDNISONE. [Suspect]
     Active Substance: PREDNISONE
     Indication: PRODUCT USED FOR UNKNOWN INDICATION
     Dosage: 50 MG, QD
     Route: 048
     Dates: start: 20170722
  6. PREDNISONE. [Suspect]
     Active Substance: PREDNISONE
     Indication: COLITIS
     Dosage: 60 MG, UNK
     Route: 048
     Dates: start: 20170623
  7. PREDNISONE. [Suspect]
     Active Substance: PREDNISONE
     Indication: PRODUCT USED FOR UNKNOWN INDICATION
     Dosage: 40 MG, BID
     Route: 048
     Dates: start: 20170714
  8. NIVOLUMAB [Suspect]
     Active Substance: NIVOLUMAB
     Indication: MALIGNANT MELANOMA
     Dosage: UNK UNK, Q3WK
     Route: 065
     Dates: start: 20170503
  9. PREDNISONE. [Suspect]
     Active Substance: PREDNISONE
     Indication: PRODUCT USED FOR UNKNOWN INDICATION
     Dosage: 80 MG, BID
     Route: 048
     Dates: start: 20170630
  10. PREDNISONE. [Suspect]
     Active Substance: PREDNISONE
     Indication: PRODUCT USED FOR UNKNOWN INDICATION
     Dosage: 40 MG, QD
     Route: 048
     Dates: start: 20170727
  11. PREDNISONE. [Suspect]
     Active Substance: PREDNISONE
     Indication: PRODUCT USED FOR UNKNOWN INDICATION
     Dosage: 30 MG, QD
     Route: 048
     Dates: start: 20170801

REACTIONS (7)
  - Blood alkaline phosphatase increased [Unknown]
  - Intestinal perforation [Unknown]
  - Vomiting [Unknown]
  - Fatigue [Not Recovered/Not Resolved]
  - Colitis [Unknown]
  - Hypothyroidism [Unknown]
  - Nausea [Unknown]

NARRATIVE: CASE EVENT DATE: 20170626
